FAERS Safety Report 20983461 (Version 1)
Quarter: 2022Q2

REPORT INFORMATION
  Report Type: Spontaneous
  Country: US (occurrence: US)
  Receive Date: 20220620
  Receipt Date: 20220620
  Transmission Date: 20220721
  Serious: Yes (Other)
  Sender: FDA-Public Use
  Company Number: US-PFIZER INC-202200847793

PATIENT
  Age: 50 Year
  Sex: Female

DRUGS (1)
  1. PAXLOVID [Suspect]
     Active Substance: NIRMATRELVIR\RITONAVIR
     Indication: COVID-19 treatment
     Dosage: UNK
     Route: 048
     Dates: start: 20220602, end: 20220607

REACTIONS (3)
  - Rash [Not Recovered/Not Resolved]
  - Urticaria [Not Recovered/Not Resolved]
  - Oral pruritus [Not Recovered/Not Resolved]

NARRATIVE: CASE EVENT DATE: 20220612
